FAERS Safety Report 10463503 (Version 1)
Quarter: 2014Q3

REPORT INFORMATION
  Report Type: Spontaneous
  Country: US (occurrence: None)
  Receive Date: 20140918
  Receipt Date: 20140918
  Transmission Date: 20150326
  Serious: No
  Sender: FDA-Public Use
  Company Number: None

PATIENT
  Age: 47 Year
  Sex: Female
  Weight: 63.5 kg

DRUGS (1)
  1. LINZESS [Suspect]
     Active Substance: LINACLOTIDE
     Indication: IRRITABLE BOWEL SYNDROME
     Dates: start: 20140819, end: 20140826

REACTIONS (4)
  - Oropharyngeal pain [None]
  - Pharyngeal inflammation [None]
  - Glossodynia [None]
  - Gingival pain [None]

NARRATIVE: CASE EVENT DATE: 20140819
